FAERS Safety Report 8340541-8 (Version None)
Quarter: 2012Q2

REPORT INFORMATION
  Report Type: 
  Country: None (occurrence: None)
  Receive Date: 20120507
  Receipt Date: 20090820
  Transmission Date: 20120825
  Serious: No
  Sender: FDA-Public Use
  Company Number: US-TEVA-2009009851

PATIENT
  Sex: Female
  Weight: 59.02 kg

DRUGS (2)
  1. TREANDA [Suspect]
     Indication: NON-HODGKIN'S LYMPHOMA
     Route: 042
     Dates: start: 20090820, end: 20090820
  2. RITUXAN [Concomitant]
     Indication: NON-HODGKIN'S LYMPHOMA
     Dates: start: 20090819

REACTIONS (3)
  - INJECTION SITE STREAKING [None]
  - INFUSION SITE PAIN [None]
  - INFUSION SITE IRRITATION [None]
